FAERS Safety Report 4825134-9 (Version None)
Quarter: 2005Q4

REPORT INFORMATION
  Report Type: 
  Country: None (occurrence: None)
  Receive Date: 20051109
  Receipt Date: 20051109
  Transmission Date: 20060501
  Serious: Yes (Other)
  Sender: FDA-Public Use
  Company Number: None

PATIENT
  Sex: Male
  Weight: 79.3795 kg

DRUGS (1)
  1. RISPERDAL [Suspect]
     Indication: DEPRESSION
     Dosage: 0.5 MG PO HS
     Route: 048
     Dates: start: 20051016, end: 20051019

REACTIONS (1)
  - INCREASED APPETITE [None]
